FAERS Safety Report 24575709 (Version 1)
Quarter: 2024Q4

REPORT INFORMATION
  Report Type: Spontaneous
  Country: US (occurrence: None)
  Receive Date: 20241101
  Receipt Date: 20241101
  Transmission Date: 20250114
  Serious: Yes (Hospitalization, Other)
  Sender: Public
  Company Number: None

PATIENT
  Sex: Female

DRUGS (1)
  1. DULOXETINE [Suspect]
     Active Substance: DULOXETINE
     Indication: Fatigue

REACTIONS (7)
  - Suicidal ideation [None]
  - Dizziness [None]
  - Withdrawal syndrome [None]
  - Electric shock sensation [None]
  - Hyperhidrosis [None]
  - Vomiting [None]
  - Nightmare [None]
